FAERS Safety Report 10229552 (Version 1)
Quarter: 2014Q2

REPORT INFORMATION
  Report Type: Spontaneous
  Country: US (occurrence: None)
  Receive Date: 20140610
  Receipt Date: 20140610
  Transmission Date: 20141212
  Serious: Yes (Other)
  Sender: FDA-Public Use
  Company Number: None

PATIENT
  Age: 69 Year
  Sex: Female
  Weight: 56.7 kg

DRUGS (4)
  1. GAMMAGARD [Suspect]
     Indication: HYPOGAMMAGLOBULINAEMIA
     Route: 042
     Dates: start: 20140606, end: 20140606
  2. REGLAN [Concomitant]
  3. TYLENOL [Concomitant]
  4. BENADRYL [Concomitant]

REACTIONS (3)
  - Pyrexia [None]
  - Headache [None]
  - Nausea [None]
